FAERS Safety Report 11733829 (Version 2)
Quarter: 2016Q1

REPORT INFORMATION
  Report Type: Spontaneous
  Country: US (occurrence: US)
  Receive Date: 20151113
  Receipt Date: 20160127
  Transmission Date: 20160525
  Serious: Yes (Hospitalization, Other)
  Sender: FDA-Public Use
  Company Number: US-ASTRAZENECA-2015SF08844

PATIENT
  Age: 70 Year
  Sex: Male
  Weight: 68 kg

DRUGS (12)
  1. GABAPENTIN. [Concomitant]
     Active Substance: GABAPENTIN
     Indication: BACK DISORDER
     Route: 048
     Dates: start: 1999
  2. NEXIUM [Suspect]
     Active Substance: ESOMEPRAZOLE MAGNESIUM
     Indication: ABDOMINAL DISCOMFORT
     Dosage: GENERIC, 40 MG DAILY
     Route: 048
     Dates: start: 2013
  3. CELEBREX [Concomitant]
     Active Substance: CELECOXIB
     Indication: ARTHRITIS
     Route: 048
     Dates: start: 1999
  4. NEXIUM [Suspect]
     Active Substance: ESOMEPRAZOLE MAGNESIUM
     Indication: GASTROOESOPHAGEAL REFLUX DISEASE
     Route: 048
  5. FISH OIL [Concomitant]
     Active Substance: FISH OIL
     Indication: DRUG THERAPY
     Dosage: DAILY
     Route: 048
     Dates: start: 2009
  6. GABAPENTIN. [Concomitant]
     Active Substance: GABAPENTIN
     Indication: ARTHRITIS
     Route: 048
     Dates: start: 1999
  7. NEXIUM [Suspect]
     Active Substance: ESOMEPRAZOLE MAGNESIUM
     Indication: ULCER
     Dosage: GENERIC, 40 MG DAILY
     Route: 048
     Dates: start: 2013
  8. CELEBREX [Concomitant]
     Active Substance: CELECOXIB
     Indication: BACK DISORDER
     Route: 048
     Dates: start: 1999
  9. NEXIUM [Suspect]
     Active Substance: ESOMEPRAZOLE MAGNESIUM
     Indication: ABDOMINAL DISCOMFORT
     Route: 048
  10. NEXIUM [Suspect]
     Active Substance: ESOMEPRAZOLE MAGNESIUM
     Indication: ULCER
     Route: 048
  11. NEXIUM [Suspect]
     Active Substance: ESOMEPRAZOLE MAGNESIUM
     Indication: GASTROOESOPHAGEAL REFLUX DISEASE
     Dosage: GENERIC, 40 MG DAILY
     Route: 048
     Dates: start: 2013
  12. VITAMIN D [Concomitant]
     Active Substance: CHOLECALCIFEROL
     Indication: DRUG THERAPY
     Dosage: DAILY
     Route: 048
     Dates: start: 2009

REACTIONS (16)
  - Dysstasia [Unknown]
  - Hemiplegia [Not Recovered/Not Resolved]
  - Weight decreased [Unknown]
  - Malaise [Unknown]
  - Memory impairment [Unknown]
  - Paraplegia [Unknown]
  - Diplopia [Unknown]
  - Back injury [Unknown]
  - Cataract [Unknown]
  - Accident [Unknown]
  - Body height decreased [Unknown]
  - Feeling abnormal [Unknown]
  - Arthralgia [Unknown]
  - Cerebrovascular accident [Recovered/Resolved with Sequelae]
  - Dyspepsia [Unknown]
  - Visual acuity reduced [Unknown]

NARRATIVE: CASE EVENT DATE: 2013
